FAERS Safety Report 19721003 (Version 1)
Quarter: 2021Q3

REPORT INFORMATION
  Report Type: Spontaneous
  Country: NL (occurrence: NL)
  Receive Date: 20210819
  Receipt Date: 20210819
  Transmission Date: 20211014
  Serious: Yes (Other)
  Sender: FDA-Public Use
  Company Number: NL-TEVA-2021-NL-1942170

PATIENT
  Age: 42 Year
  Sex: Male
  Weight: 82 kg

DRUGS (1)
  1. DOXYCYCLINE DISPERTABLET 100MG / BRAND NAME NOT SPECIFIED [Suspect]
     Active Substance: DOXYCYCLINE
     Indication: ARTHROPOD BITE
     Dosage: 200 MILLIGRAM DAILY; THERAPY END DATE ASKU
     Route: 065
     Dates: start: 20210726

REACTIONS (1)
  - Haematochezia [Unknown]

NARRATIVE: CASE EVENT DATE: 20210727
